FAERS Safety Report 24931908 (Version 1)
Quarter: 2025Q1

REPORT INFORMATION
  Report Type: Spontaneous
  Country: IT (occurrence: IT)
  Receive Date: 20250205
  Receipt Date: 20250205
  Transmission Date: 20250408
  Serious: No
  Sender: EXELIXIS
  Company Number: None

PATIENT
  Age: 66 Year
  Sex: Male
  Weight: 69 kg

DRUGS (6)
  1. CABOMETYX [Suspect]
     Active Substance: CABOZANTINIB S-MALATE
     Indication: Metastases to liver
     Dosage: 40 MG, QD (DURING CYCLE 1 OF THERAPY THE PATIENT TOOK CABOMETYX 40 MG, 1 TIME A DAY FOR 28 DAYS. DOS
     Route: 048
     Dates: start: 20240521, end: 20240617
  2. CABOMETYX [Suspect]
     Active Substance: CABOZANTINIB S-MALATE
     Indication: Renal cancer
  3. CABOMETYX [Suspect]
     Active Substance: CABOZANTINIB S-MALATE
     Indication: Metastases to pancreas
  4. CREON [Concomitant]
     Active Substance: PANCRELIPASE AMYLASE\PANCRELIPASE LIPASE\PANCRELIPASE PROTEASE
  5. LEVOTHYROXINE SODIUM [Concomitant]
     Active Substance: LEVOTHYROXINE SODIUM
     Dosage: 100 UG, QD (THE PATIENT TAKES EUTIROX 100 UG, 1 TIME A DAY)
     Route: 048
  6. FUROSEMIDE\RESERPINE [Concomitant]
     Active Substance: FUROSEMIDE\RESERPINE
     Dosage: 25 MG, QD (THE PATIENT TAKES LASIX 25 MG, 1 TIME A DAY.)
     Route: 048

REACTIONS (3)
  - Abdominal distension [Unknown]
  - Headache [Unknown]
  - Asthenia [Unknown]

NARRATIVE: CASE EVENT DATE: 20240524
